FAERS Safety Report 5326060-1 (Version None)
Quarter: 2007Q2

REPORT INFORMATION
  Report Type: 
  Country: None (occurrence: None)
  Receive Date: 20070516
  Receipt Date: 20070504
  Transmission Date: 20071010
  Serious: Yes (Other)
  Sender: FDA-Public Use
  Company Number: US-AMGEN-STX217928

PATIENT
  Sex: Male

DRUGS (10)
  1. ENBREL [Suspect]
     Indication: RHEUMATOID ARTHRITIS
     Route: 058
     Dates: start: 20061129, end: 20070401
  2. ENBREL [Suspect]
     Indication: PSORIASIS
  3. METHOTREXATE [Concomitant]
     Route: 065
     Dates: start: 20061129, end: 20070401
  4. ALLOPURINOL [Concomitant]
     Route: 065
  5. ATENOLOL [Concomitant]
     Route: 065
  6. ASPIRIN [Concomitant]
     Route: 065
  7. INDAPAMIDE [Concomitant]
     Route: 065
  8. COZAAR [Concomitant]
     Route: 065
  9. SIMVASTATIN [Concomitant]
     Route: 065
  10. NEXIUM [Concomitant]
     Route: 065

REACTIONS (2)
  - ANGINA PECTORIS [None]
  - HEART RATE IRREGULAR [None]
